FAERS Safety Report 5476275-7 (Version None)
Quarter: 2007Q4

REPORT INFORMATION
  Report Type: 
  Country: None (occurrence: None)
  Receive Date: 20071003
  Receipt Date: 20070924
  Transmission Date: 20080405
  Serious: Yes (Other)
  Sender: FDA-Public Use
  Company Number: US-PFIZER INC-2007079915

PATIENT
  Age: 3 Year

DRUGS (1)
  1. DEPO-MEDROL [Suspect]

REACTIONS (1)
  - DRUG DISPENSING ERROR [None]
